FAERS Safety Report 12822358 (Version 1)
Quarter: 2016Q4

REPORT INFORMATION
  Report Type: Spontaneous
  Country: US (occurrence: US)
  Receive Date: 20161006
  Receipt Date: 20161006
  Transmission Date: 20170207
  Serious: Yes (Other)
  Sender: FDA-Public Use
  Company Number: None

PATIENT
  Age: 8 Year
  Sex: Male
  Weight: 30.6 kg

DRUGS (1)
  1. PEGASPARGASE [Suspect]
     Active Substance: PEGASPARGASE
     Dates: start: 20160806

REACTIONS (4)
  - Vomiting [None]
  - Flushing [None]
  - Cough [None]
  - Swelling [None]

NARRATIVE: CASE EVENT DATE: 20160829
